FAERS Safety Report 9108511 (Version 1)
Quarter: 2013Q1

REPORT INFORMATION
  Report Type: Spontaneous
  Country: GB (occurrence: GB)
  Receive Date: 20130222
  Receipt Date: 20130222
  Transmission Date: 20140127
  Serious: Yes (Other)
  Sender: FDA-Public Use
  Company Number: GB-AMGEN-GBRSP2013010881

PATIENT
  Age: 81 Year
  Sex: Female

DRUGS (10)
  1. XGEVA [Suspect]
     Indication: BONE PAIN
     Dosage: 120 MG, UNK
     Route: 058
     Dates: start: 20130102
  2. XGEVA [Suspect]
     Indication: BLOOD CALCIUM INCREASED
  3. XGEVA [Suspect]
     Indication: BREAST CANCER
  4. XGEVA [Suspect]
     Indication: METASTASES TO BONE
  5. AMITRIPTYLINE [Concomitant]
     Indication: NEURALGIA
     Dosage: 25 MG, UNK
     Route: 048
  6. BISOPROLOL [Concomitant]
     Dosage: 1.25 MG, QD
     Dates: start: 20130107
  7. BUPRENORPHINE [Concomitant]
     Dosage: UNK
     Route: 061
     Dates: start: 20121224
  8. ENOXAPARIN [Concomitant]
     Indication: THROMBOSIS PROPHYLAXIS
     Dosage: 20 MG, UNK
     Route: 058
     Dates: start: 20121221
  9. OMEPRAZOLE [Concomitant]
     Dosage: 20 MG, QD
  10. QUININE SULPHATE [Concomitant]
     Indication: MUSCLE SPASMS
     Dosage: 200 MG, UNK

REACTIONS (2)
  - Hypomagnesaemia [Recovering/Resolving]
  - Hypocalcaemia [Recovering/Resolving]
